FAERS Safety Report 7234606-1 (Version None)
Quarter: 2011Q1

REPORT INFORMATION
  Report Type: 
  Country: None (occurrence: None)
  Receive Date: 20110120
  Receipt Date: 20110110
  Transmission Date: 20110831
  Serious: Yes (Hospitalization)
  Sender: FDA-Public Use
  Company Number: US-BIOGENIDEC-2010BI039916

PATIENT
  Age: 58 Year
  Sex: Female

DRUGS (2)
  1. AVONEX [Suspect]
     Indication: MULTIPLE SCLEROSIS
     Route: 030
     Dates: start: 20060303, end: 20060710
  2. AVONEX [Suspect]
     Route: 030
     Dates: start: 20070324

REACTIONS (2)
  - DEVICE RELATED INFECTION [None]
  - ARTHROPATHY [None]
